FAERS Safety Report 9674298 (Version 2)
Quarter: 2016Q3

REPORT INFORMATION
  Report Type: Report from Study
  Country: US (occurrence: US)
  Receive Date: 20131107
  Receipt Date: 20160901
  Transmission Date: 20161109
  Serious: Yes (Hospitalization)
  Sender: FDA-Public Use
  Company Number: US-ROCHE-1293456

PATIENT
  Age: 55 Year
  Sex: Female
  Weight: 73.55 kg

DRUGS (25)
  1. IRINOTECAN [Concomitant]
     Active Substance: IRINOTECAN
     Route: 065
  2. ACIDOPHILUS [Concomitant]
     Active Substance: LACTOBACILLUS ACIDOPHILUS
     Route: 048
  3. LOMOTIL (UNITED STATES) [Concomitant]
     Indication: DIARRHOEA
     Route: 065
     Dates: start: 20110927
  4. MISTLETOE [Concomitant]
     Indication: NEOPLASM MALIGNANT
     Dosage: TUES, THUR, SAT EOW
     Route: 058
  5. COLACE [Concomitant]
     Active Substance: DOCUSATE SODIUM
     Route: 065
  6. FLUOROURACIL. [Concomitant]
     Active Substance: FLUOROURACIL
     Route: 065
  7. NORMAL SALINE [Concomitant]
     Active Substance: SODIUM CHLORIDE
     Route: 042
  8. VITAMIN D3 [Concomitant]
     Active Substance: CHOLECALCIFEROL
     Dosage: 1000 UNITS
     Route: 048
  9. ALOXI [Concomitant]
     Active Substance: PALONOSETRON HYDROCHLORIDE
     Dosage: PRIOR TO CHEMOTHERAPY
     Route: 041
  10. MAALOX, BENADRYL + LIDOCAINE MOUTHWASH [Concomitant]
     Indication: STOMATITIS
     Route: 065
     Dates: start: 20110913
  11. AVASTIN [Suspect]
     Active Substance: BEVACIZUMAB
     Indication: COLON CANCER
     Route: 065
     Dates: start: 20090606
  12. FLUOROURACIL. [Concomitant]
     Active Substance: FLUOROURACIL
     Route: 065
  13. LEUCOVORIN. [Concomitant]
     Active Substance: LEUCOVORIN
     Route: 065
  14. PALONOSETRON [Concomitant]
     Active Substance: PALONOSETRON
     Indication: NAUSEA
     Route: 042
  15. ASTRAGALUS ROOT [Concomitant]
     Route: 065
  16. ZITHROMAX [Concomitant]
     Active Substance: AZITHROMYCIN DIHYDRATE
     Indication: NASOPHARYNGITIS
     Route: 065
     Dates: start: 20110523
  17. DEXAMETHASONE. [Concomitant]
     Active Substance: DEXAMETHASONE
     Route: 042
  18. BENADRYL [Concomitant]
     Active Substance: DIPHENHYDRAMINE HYDROCHLORIDE
     Dosage: 1 HR PRIOR TO TREATMENT TO CONSTRAST INJECTION
     Route: 048
  19. VITAMIN B12 [Concomitant]
     Active Substance: CYANOCOBALAMIN
     Dosage: 2 UNDER TONGUE QHS
     Route: 060
  20. VICODIN [Concomitant]
     Active Substance: ACETAMINOPHEN\HYDROCODONE BITARTRATE
     Dosage: 5-500MG
     Route: 065
  21. LISINOPRIL. [Concomitant]
     Active Substance: LISINOPRIL
     Route: 048
  22. ATROPINE SULPHATE [Concomitant]
     Active Substance: ATROPINE SULFATE
     Route: 042
  23. VALIUM [Suspect]
     Active Substance: DIAZEPAM
     Indication: PRODUCT USED FOR UNKNOWN INDICATION
     Route: 065
  24. PREDNISONE. [Concomitant]
     Active Substance: PREDNISONE
     Dosage: 13H, 7 HR + 1 HR PRIOR TO TX
     Route: 048
  25. PROCHLORPERAZINE MALEATE. [Concomitant]
     Active Substance: PROCHLORPERAZINE MALEATE
     Indication: NAUSEA
     Dosage: EVERY 6-8 HOURS AS NEEDED
     Route: 048

REACTIONS (6)
  - Fatigue [Unknown]
  - Nasopharyngitis [Unknown]
  - Oophorectomy [Unknown]
  - Hypersensitivity [Unknown]
  - Stomatitis [Unknown]
  - Diarrhoea [Recovered/Resolved]

NARRATIVE: CASE EVENT DATE: 20110509
